FAERS Safety Report 4451895-7 (Version None)
Quarter: 2004Q3

REPORT INFORMATION
  Report Type: 
  Country: None (occurrence: None)
  Receive Date: 20040913
  Receipt Date: 20040726
  Transmission Date: 20050211
  Serious: No
  Sender: FDA-Public Use
  Company Number: 2004-BP-06144BP(0)

PATIENT
  Age: 61 Year
  Sex: Male

DRUGS (8)
  1. SPIRIVA [Suspect]
     Indication: CHRONIC OBSTRUCTIVE AIRWAYS DISEASE
     Dosage: 18 MCG (18 MCG), IH
     Dates: start: 20040601
  2. ADVAIR (SERETIDE MITE) [Concomitant]
  3. PAXIL [Concomitant]
  4. LIPITOR [Concomitant]
  5. CELEBREX [Concomitant]
  6. INSULIN [Concomitant]
  7. PROTONIX [Concomitant]
  8. SINGULAIR [Concomitant]

REACTIONS (1)
  - COUGH [None]
